FAERS Safety Report 12248342 (Version 1)
Quarter: 2016Q2

REPORT INFORMATION
  Report Type: Spontaneous
  Country: US (occurrence: None)
  Receive Date: 20160407
  Receipt Date: 20160407
  Transmission Date: 20160815
  Serious: No
  Sender: FDA-Public Use
  Company Number: None

PATIENT
  Age: 55 Year
  Sex: Female

DRUGS (13)
  1. XELJANZ [Suspect]
     Active Substance: TOFACITINIB CITRATE
     Indication: RHEUMATOID ARTHRITIS
     Route: 048
     Dates: start: 20150415
  2. CARISOPRODOL. [Concomitant]
     Active Substance: CARISOPRODOL
  3. SERTRALINE [Concomitant]
     Active Substance: SERTRALINE HYDROCHLORIDE
  4. CYMBALTA [Concomitant]
     Active Substance: DULOXETINE HYDROCHLORIDE
  5. HCTZ [Concomitant]
     Active Substance: HYDROCHLOROTHIAZIDE
  6. METHOTREXATE [Concomitant]
     Active Substance: METHOTREXATE
  7. LEFLUNOMIDE. [Concomitant]
     Active Substance: LEFLUNOMIDE
  8. SULFAZINE [Concomitant]
     Active Substance: SULFASALAZINE
  9. HYDROCO/APAP [Concomitant]
     Active Substance: ACETAMINOPHEN\HYDROCODONE
  10. CLONAZEPAM. [Concomitant]
     Active Substance: CLONAZEPAM
  11. TRIMETHOBENZ [Concomitant]
  12. AMPHETAMINE [Concomitant]
     Active Substance: AMPHETAMINE
  13. BUPROPION. [Concomitant]
     Active Substance: BUPROPION

REACTIONS (1)
  - Condition aggravated [None]

NARRATIVE: CASE EVENT DATE: 201603
